FAERS Safety Report 8067480 (Version 5)
Quarter: 2013Q1

REPORT INFORMATION
  Report Type: Spontaneous
  Country: JP (occurrence: JP)
  Receive Date: 20110803
  Receipt Date: 20130315
  Transmission Date: 20140127
  Serious: Yes (Disabling)
  Sender: FDA-Public Use
  Company Number: JP-GLAXOSMITHKLINE-B0736159A

PATIENT
  Age: 69 Year
  Sex: Female

DRUGS (4)
  1. LAMICTAL [Suspect]
     Indication: BIPOLAR DISORDER
     Dosage: 25MG PER DAY
     Route: 048
     Dates: start: 20110716, end: 20110727
  2. LIMAS [Concomitant]
     Indication: BIPOLAR DISORDER
     Dosage: 800MG TWICE PER DAY
     Route: 048
  3. INVEGA [Concomitant]
     Indication: BIPOLAR DISORDER
     Dosage: 9MG PER DAY
     Route: 048
     Dates: start: 20110325
  4. TASMOLIN [Concomitant]
     Dosage: 6MG THREE TIMES PER DAY
     Route: 048

REACTIONS (6)
  - Erythema [Recovered/Resolved]
  - Conjunctival hyperaemia [Recovered/Resolved]
  - Rash generalised [Recovering/Resolving]
  - Pyrexia [Recovering/Resolving]
  - Pruritus [Unknown]
  - Erythema [Unknown]
